FAERS Safety Report 8953220 (Version 1)
Quarter: 2012Q4

REPORT INFORMATION
  Report Type: 
  Country: US (occurrence: US)
  Receive Date: 20121206
  Receipt Date: 20121206
  Transmission Date: 20130627
  Serious: No
  Sender: FDA-Public Use
  Company Number: US-009507513-1211USA012828

PATIENT
  Sex: Male

DRUGS (1)
  1. TEMODAR [Suspect]

REACTIONS (2)
  - Coombs negative haemolytic anaemia [Unknown]
  - Inappropriate schedule of drug administration [Unknown]
